FAERS Safety Report 6025923-1 (Version None)
Quarter: 2008Q4

REPORT INFORMATION
  Report Type: 
  Country: None (occurrence: None)
  Receive Date: 20081229
  Receipt Date: 20081214
  Transmission Date: 20090506
  Serious: Yes (Other)
  Sender: FDA-Public Use
  Company Number: CHPA2008US22605

PATIENT
  Age: 35 Month
  Sex: Female
  Weight: 15.9 kg

DRUGS (2)
  1. TRIAMINIC SRT [Suspect]
     Dosage: 12 DF, ONCE/SINGLE, ORAL; 1 DF, ONCE/SINGLE, ORAL
     Route: 048
     Dates: start: 20081214, end: 20081214
  2. TRIAMINIC SRT [Suspect]
     Dosage: 12 DF, ONCE/SINGLE, ORAL; 1 DF, ONCE/SINGLE, ORAL
     Route: 048
     Dates: start: 20081214, end: 20081214

REACTIONS (6)
  - ABNORMAL BEHAVIOUR [None]
  - ACCIDENTAL DRUG INTAKE BY CHILD [None]
  - ACCIDENTAL OVERDOSE [None]
  - INCORRECT DOSE ADMINISTERED [None]
  - IRRITABILITY [None]
  - SOMNOLENCE [None]
